FAERS Safety Report 13951260 (Version 1)
Quarter: 2017Q3

REPORT INFORMATION
  Report Type: Spontaneous
  Country: DE (occurrence: DE)
  Receive Date: 20170908
  Receipt Date: 20170908
  Transmission Date: 20171128
  Serious: Yes (Other)
  Sender: FDA-Public Use
  Company Number: DE-CELGENEUS-DEU-2017028435

PATIENT
  Age: 33 Year
  Sex: Female

DRUGS (4)
  1. PANTOPRAZOLE [Concomitant]
     Active Substance: PANTOPRAZOLE
     Indication: GASTRITIS PROPHYLAXIS
     Route: 065
  2. OTEZLA [Suspect]
     Active Substance: APREMILAST
     Indication: PSORIASIS
     Route: 048
     Dates: start: 201704
  3. METHOTREXATE. [Concomitant]
     Active Substance: METHOTREXATE
     Indication: PRODUCT USED FOR UNKNOWN INDICATION
     Route: 065
  4. OTEZLA [Suspect]
     Active Substance: APREMILAST
     Indication: PSORIATIC ARTHROPATHY
     Route: 048
     Dates: start: 201609

REACTIONS (20)
  - Epistaxis [Recovering/Resolving]
  - Gamma-glutamyltransferase increased [Recovering/Resolving]
  - Night sweats [Unknown]
  - Abdominal pain [Recovering/Resolving]
  - Rhinitis [Unknown]
  - Sleep disorder [Unknown]
  - Tremor [Unknown]
  - Insomnia [Recovering/Resolving]
  - Breast pain [Recovering/Resolving]
  - Anxiety [Unknown]
  - Diarrhoea [Recovering/Resolving]
  - Colitis [Recovering/Resolving]
  - Oral herpes [Unknown]
  - Tachycardia [Unknown]
  - Apathy [Recovering/Resolving]
  - Respiratory tract infection [Unknown]
  - Gallbladder disorder [Recovered/Resolved]
  - Weight decreased [Recovering/Resolving]
  - Nausea [Recovering/Resolving]
  - Vomiting [Recovering/Resolving]

NARRATIVE: CASE EVENT DATE: 201609
